FAERS Safety Report 17162422 (Version 1)
Quarter: 2019Q4

REPORT INFORMATION
  Report Type: Spontaneous
  Country: US (occurrence: US)
  Receive Date: 20191217
  Receipt Date: 20191217
  Transmission Date: 20200122
  Serious: Yes (Other)
  Sender: FDA-Public Use
  Company Number: US-ROCHE-2495759

PATIENT
  Sex: Male
  Weight: 90.8 kg

DRUGS (1)
  1. LUCENTIS [Suspect]
     Active Substance: RANIBIZUMAB
     Indication: NEOVASCULAR AGE-RELATED MACULAR DEGENERATION
     Route: 065

REACTIONS (3)
  - Eye swelling [Not Recovered/Not Resolved]
  - Dry eye [Unknown]
  - Blindness [Not Recovered/Not Resolved]
